FAERS Safety Report 16151839 (Version 1)
Quarter: 2019Q2

REPORT INFORMATION
  Report Type: Spontaneous
  Country: US (occurrence: US)
  Receive Date: 20190228
  Receipt Date: 20190228
  Transmission Date: 20190711
  Serious: No
  Sender: FDA-Public Use
  Company Number: None

PATIENT
  Age: 63 Year
  Sex: Male
  Weight: 177.35 kg

DRUGS (2)
  1. MIDAZOLAM [Suspect]
     Active Substance: MIDAZOLAM HYDROCHLORIDE
     Indication: SEDATION
     Dosage: ?          OTHER DOSE:MG;?
     Route: 042
     Dates: start: 20190207, end: 20190207
  2. FENTANYL. [Suspect]
     Active Substance: FENTANYL
     Indication: SEDATION
     Dosage: ?          OTHER DOSE:UG;?
     Route: 042
     Dates: start: 20190207, end: 20190207

REACTIONS (3)
  - Hypovolaemia [None]
  - Hypotension [None]
  - Hyperhidrosis [None]

NARRATIVE: CASE EVENT DATE: 20190207
